FAERS Safety Report 15790564 (Version 4)
Quarter: 2019Q1

REPORT INFORMATION
  Report Type: Report from Study
  Country: None (occurrence: US)
  Receive Date: 20190104
  Receipt Date: 20190320
  Transmission Date: 20190417
  Serious: Yes (Death, Life-Threatening, Hospitalization)
  Sender: FDA-Public Use
  Company Number: US-ABBVIE-18P-163-2515663-00

PATIENT
  Age: 55 Year
  Sex: Male
  Weight: 78.1 kg

DRUGS (2)
  1. VENETOCLAX. [Suspect]
     Active Substance: VENETOCLAX
     Indication: DIFFUSE LARGE B-CELL LYMPHOMA
     Dosage: MOST RECENT DOSE  PRIOR TO SAE ONSET: 25/SEP/2018; 26/SEP/2018; 26/DEC/2018
     Route: 048
     Dates: start: 20180925
  2. RO6870810 [Suspect]
     Active Substance: RO-6870810
     Indication: DIFFUSE LARGE B-CELL LYMPHOMA
     Dosage: D1-14 OF 21D CYCLE.MOST RECENT DOSE PRIOR TO SAE ONSET:25/SEP/2018;28/SEP/2018,26/DEC/2018
     Route: 058
     Dates: start: 20180925

REACTIONS (2)
  - Sepsis [Fatal]
  - Diarrhoea [Not Recovered/Not Resolved]

NARRATIVE: CASE EVENT DATE: 20180929
